FAERS Safety Report 4729323-3 (Version None)
Quarter: 2005Q3

REPORT INFORMATION
  Report Type: 
  Country: None (occurrence: None)
  Receive Date: 20050729
  Receipt Date: 20050721
  Transmission Date: 20060218
  Serious: Yes (Hospitalization)
  Sender: FDA-Public Use
  Company Number: US-JNJFOC-20050704624

PATIENT
  Sex: Male
  Weight: 73.48 kg

DRUGS (1)
  1. DURAGESIC-100 [Suspect]
     Route: 062
     Dates: start: 20041001

REACTIONS (3)
  - INTERVERTEBRAL DISC OPERATION [None]
  - SCOLIOSIS [None]
  - THERAPEUTIC RESPONSE DECREASED [None]
